FAERS Safety Report 9261859 (Version 2)
Quarter: 2013Q2

REPORT INFORMATION
  Report Type: Spontaneous
  Country: US (occurrence: US)
  Receive Date: 20130429
  Receipt Date: 20130506
  Transmission Date: 20140414
  Serious: Yes (Other)
  Sender: FDA-Public Use
  Company Number: CHPA2013US007360

PATIENT
  Age: 77 Year
  Sex: Female

DRUGS (3)
  1. PREVACID 24HR 15MG [Suspect]
     Indication: DYSPEPSIA
     Dosage: 15 MG, QD
     Route: 048
  2. PREVACID 24HR 15MG [Suspect]
     Dosage: 15 MG, BID-TID PRN
     Route: 048
  3. PROTONIX [Concomitant]
     Indication: DYSPEPSIA
     Dosage: ONE, QD

REACTIONS (4)
  - Pneumonia [Recovered/Resolved]
  - Drug ineffective for unapproved indication [Unknown]
  - Incorrect drug administration duration [Unknown]
  - Wrong technique in drug usage process [Recovered/Resolved]
